FAERS Safety Report 8365370-0 (Version None)
Quarter: 2012Q2

REPORT INFORMATION
  Report Type: 
  Country: None (occurrence: None)
  Receive Date: 20120516
  Receipt Date: 20111121
  Transmission Date: 20120825
  Serious: Yes (Death)
  Sender: FDA-Public Use
  Company Number: US-SHIRE-ALL1-2011-04599

PATIENT
  Age: 65 Year
  Sex: Male

DRUGS (1)
  1. PENTASA [Suspect]
     Indication: PRODUCT USED FOR UNKNOWN INDICATION
     Dosage: 500 MG, 6 CAPSULES DAILY.
     Route: 048
     Dates: start: 20090619, end: 20110101

REACTIONS (1)
  - MALIGNANT ANORECTAL NEOPLASM [None]
